FAERS Safety Report 17715504 (Version 5)
Quarter: 2020Q4

REPORT INFORMATION
  Report Type: Report from Study
  Country: CO (occurrence: CO)
  Receive Date: 20200427
  Receipt Date: 20201224
  Transmission Date: 20210113
  Serious: Yes (Life-Threatening, Hospitalization, Other)
  Sender: FDA-Public Use
  Company Number: NVSC2020CO112607

PATIENT
  Age: 1 Year
  Sex: Male
  Weight: 11.45 kg

DRUGS (8)
  1. REVOLADE [Suspect]
     Active Substance: ELTROMBOPAG
     Dosage: 25 MG, QD (EVERY 24 HOURS)
     Route: 048
     Dates: end: 201907
  2. REVOLADE [Suspect]
     Active Substance: ELTROMBOPAG
     Dosage: UNK UNK, Q24H
     Route: 048
     Dates: start: 202004
  3. URSODEOXYCHOLIC ACID [Concomitant]
     Active Substance: URSODIOL
     Indication: PRODUCT USED FOR UNKNOWN INDICATION
     Dosage: UNK
     Route: 048
  4. REVOLADE [Suspect]
     Active Substance: ELTROMBOPAG
     Dosage: 25 MG, Q24H
     Route: 048
     Dates: end: 202004
  5. REVOLADE [Suspect]
     Active Substance: ELTROMBOPAG
     Indication: IMMUNE THROMBOCYTOPENIA
     Dosage: 25 MG, QD (EVERY 24 HOURS)
     Route: 048
     Dates: start: 201907
  6. TRIMETHOPRIM SULFA [Concomitant]
     Active Substance: TRIMETHOPRIM SULFATE
     Indication: PRODUCT USED FOR UNKNOWN INDICATION
     Dosage: UNK
     Route: 065
  7. METHOTREXATE. [Concomitant]
     Active Substance: METHOTREXATE
     Indication: PRODUCT USED FOR UNKNOWN INDICATION
     Dosage: UNK
     Route: 065
  8. FILGRASTIM [Concomitant]
     Active Substance: FILGRASTIM
     Indication: IMMUNOSUPPRESSION
     Dosage: 75 UG (EVERY TUESDAY AND FRIDAY)
     Route: 058

REACTIONS (15)
  - Eye inflammation [Recovered/Resolved]
  - Cytomegalovirus infection [Unknown]
  - Blood magnesium decreased [Unknown]
  - Drug ineffective [Unknown]
  - Decreased appetite [Unknown]
  - Wiskott-Aldrich syndrome [Unknown]
  - Petechiae [Unknown]
  - Gastrointestinal infection [Unknown]
  - Bone marrow transplant rejection [Unknown]
  - Platelet count decreased [Unknown]
  - Protein total increased [Unknown]
  - Pyrexia [Unknown]
  - Diarrhoea [Recovered/Resolved]
  - Intestine transplant rejection [Unknown]
  - Vomiting [Unknown]

NARRATIVE: CASE EVENT DATE: 20191212
